FAERS Safety Report 19902287 (Version 1)
Quarter: 2021Q3

REPORT INFORMATION
  Report Type: Spontaneous
  Country: US (occurrence: US)
  Receive Date: 20210930
  Receipt Date: 20210930
  Transmission Date: 20211014
  Serious: No
  Sender: FDA-Public Use
  Company Number: US-SA-2021SA318826

PATIENT
  Sex: Male

DRUGS (1)
  1. DUPIXENT [Suspect]
     Active Substance: DUPILUMAB
     Indication: SELECTIVE IGG SUBCLASS DEFICIENCY
     Dosage: 300 MG, QOW
     Route: 058
     Dates: start: 202105

REACTIONS (1)
  - Drug ineffective for unapproved indication [Unknown]
